FAERS Safety Report 11705513 (Version 3)
Quarter: 2016Q1

REPORT INFORMATION
  Report Type: Report from Study
  Country: US (occurrence: US)
  Receive Date: 20151106
  Receipt Date: 20160322
  Transmission Date: 20160525
  Serious: Yes (Death)
  Sender: FDA-Public Use
  Company Number: US-ARIAD-2015US005364

PATIENT
  Age: 72 Year
  Sex: Female

DRUGS (1)
  1. ICLUSIG [Suspect]
     Active Substance: PONATINIB
     Indication: OVARIAN CANCER
     Dosage: 30 MG, QD
     Route: 048
     Dates: start: 20150506, end: 20150712

REACTIONS (5)
  - Fallopian tube cancer [Fatal]
  - Metastases to liver [Fatal]
  - Fatigue [Unknown]
  - Constipation [Unknown]
  - Colitis [Unknown]

NARRATIVE: CASE EVENT DATE: 20150403
